FAERS Safety Report 4589384-1 (Version None)
Quarter: 2005Q1

REPORT INFORMATION
  Report Type: 
  Country: None (occurrence: None)
  Receive Date: 20050216
  Receipt Date: 20050203
  Transmission Date: 20050727
  Serious: Yes (Hospitalization)
  Sender: FDA-Public Use
  Company Number: A01200500581

PATIENT
  Age: 44 Year
  Sex: Male

DRUGS (7)
  1. PLAVIX [Suspect]
     Indication: ANGINA UNSTABLE
     Dosage: 75 MG OD
     Route: 048
     Dates: start: 20050111, end: 20050201
  2. TRIMETAZIDINE [Concomitant]
  3. NITROGLYCERINE (GLYCERYL TRINITRATE) [Concomitant]
  4. METOPROLOL [Concomitant]
  5. ACETYLSALICYLIC ACID [Concomitant]
  6. ATORVASTATIN [Concomitant]
  7. GLICLAZIDE [Concomitant]

REACTIONS (3)
  - HAEMATURIA [None]
  - RENAL COLIC [None]
  - THROMBOCYTOPENIA [None]
